FAERS Safety Report 19370839 (Version 1)
Quarter: 2021Q2

REPORT INFORMATION
  Report Type: Spontaneous
  Country: VN (occurrence: VN)
  Receive Date: 20210604
  Receipt Date: 20210604
  Transmission Date: 20210717
  Serious: Yes (Other)
  Sender: FDA-Public Use
  Company Number: VN-ROCHE-2842383

PATIENT
  Age: 76 Year
  Sex: Female

DRUGS (1)
  1. ACTILYSE [Suspect]
     Active Substance: ALTEPLASE
     Indication: CEREBRAL INFARCTION
     Route: 065

REACTIONS (2)
  - Carotid artery occlusion [Recovered/Resolved]
  - NIH stroke scale score increased [Recovered/Resolved]
